FAERS Safety Report 13389765 (Version 2)
Quarter: 2017Q2

REPORT INFORMATION
  Report Type: Spontaneous
  Country: FR (occurrence: FR)
  Receive Date: 20170331
  Receipt Date: 20170410
  Transmission Date: 20170830
  Serious: Yes (Hospitalization)
  Sender: FDA-Public Use
  Company Number: FR-ACCORD-049631

PATIENT
  Age: 65 Year
  Sex: Male

DRUGS (9)
  1. DOCETAXEL ACCORD [Suspect]
     Active Substance: DOCETAXEL
     Indication: RHABDOMYOSARCOMA
     Dosage: 100MG/M2 ONCE EVERY 3 WEEKS
     Route: 042
     Dates: start: 20170118, end: 20170130
  2. INNOVAIR NEXTHALER [Concomitant]
     Dosage: 100 MICROGRAMMES/6 MICROGRAMMES PER DOSE, POWDER FOR INHALATION
     Route: 055
  3. ATORVASTATIN [Concomitant]
     Active Substance: ATORVASTATIN
     Route: 048
  4. VALSARTAN. [Concomitant]
     Active Substance: VALSARTAN
     Dosage: USUAL TREATMENT
     Route: 048
  5. GEMCITABINE ACCORD [Concomitant]
     Active Substance: GEMCITABINE HYDROCHLORIDE
     Dosage: SECOND LINE OF TREATMENT, TWO ADMINISTRATIONS OF 900 MG/M2 ON DAY1 AND DAY8 (STRENGTH: 200 MG)
     Route: 042
     Dates: start: 20170111
  6. ONDANSETRON ACCORD [Concomitant]
     Active Substance: ONDANSETRON
     Dosage: 2 MG/ML, SOLUTION INJECTABLE ?8 MG IN ONE SINGLE INTAKE - INTRAVENOUS ROUTE.
     Route: 042
     Dates: start: 20170118
  7. METFORMIN [Concomitant]
     Active Substance: METFORMIN HYDROCHLORIDE
     Route: 048
  8. METHYLPREDNISOLONE MYLAN [Concomitant]
     Active Substance: METHYLPREDNISOLONE
     Dosage: IM-IV?STRENGTH: 120 MG?80 MG IN ONE SINGLE INTAKE
     Dates: start: 20170118
  9. EXENATIDE [Concomitant]
     Active Substance: EXENATIDE
     Dosage: USUAL TREATMENT
     Route: 059

REACTIONS (8)
  - Anaemia [Unknown]
  - Fungal infection [Unknown]
  - Colitis [Recovered/Resolved]
  - Off label use [Unknown]
  - Weight decreased [Unknown]
  - Stasis dermatitis [Unknown]
  - Thrombocytopenia [Unknown]
  - Peripheral venous disease [Unknown]

NARRATIVE: CASE EVENT DATE: 20170123
